FAERS Safety Report 7237689-8 (Version None)
Quarter: 2011Q1

REPORT INFORMATION
  Report Type: 
  Country: None (occurrence: None)
  Receive Date: 20110121
  Receipt Date: 20110112
  Transmission Date: 20110831
  Serious: Yes (Hospitalization)
  Sender: FDA-Public Use
  Company Number: JP-JNJCH-2011001561

PATIENT
  Age: 54 Year
  Sex: Male

DRUGS (1)
  1. ZYRTEC [Suspect]
     Indication: PRODUCT USED FOR UNKNOWN INDICATION
     Dosage: TEXT:10 MG QD
     Route: 048
     Dates: start: 20090501, end: 20090501

REACTIONS (1)
  - CONVULSION [None]
